FAERS Safety Report 7110572 (Version 2)
Quarter: 2013Q1

REPORT INFORMATION
  Report Type: Spontaneous
  Country: IT (occurrence: None)
  Receive Date: 20090901
  Receipt Date: 20130305
  Transmission Date: 20140127
  Serious: Yes (Other)
  Sender: FDA-Public Use
  Company Number: IT-2009-1746

PATIENT
  Age: 85 Year
  Sex: Male

DRUGS (1)
  1. NAVELBINE [Suspect]
     Indication: KAPOSI^S SARCOMA
     Route: 042
     Dates: start: 200510

REACTIONS (2)
  - Rash erythematous [None]
  - Injection site discolouration [None]
